FAERS Safety Report 18956278 (Version 3)
Quarter: 2021Q2

REPORT INFORMATION
  Report Type: Spontaneous
  Country: CA (occurrence: CA)
  Receive Date: 20210301
  Receipt Date: 20210429
  Transmission Date: 20210717
  Serious: Yes (Hospitalization)
  Sender: FDA-Public Use
  Company Number: CA-BIOGEN-2021BI00983672

PATIENT
  Age: 45 Year
  Sex: Female

DRUGS (1)
  1. TYSABRI [Suspect]
     Active Substance: NATALIZUMAB
     Indication: CONCENTRIC SCLEROSIS
     Route: 042
     Dates: start: 2015

REACTIONS (1)
  - Central nervous system lymphoma [Recovered/Resolved with Sequelae]
